FAERS Safety Report 23715181 (Version 1)
Quarter: 2024Q2

REPORT INFORMATION
  Report Type: Spontaneous
  Country: GB (occurrence: GB)
  Receive Date: 20240407
  Receipt Date: 20240407
  Transmission Date: 20240715
  Serious: Yes (Other)
  Sender: FDA-Public Use
  Company Number: None

PATIENT
  Age: 85 Year

DRUGS (12)
  1. OMEPRAZOLE [Suspect]
     Active Substance: OMEPRAZOLE
  2. ACETAMINOPHEN\CODEINE PHOSPHATE [Concomitant]
     Active Substance: ACETAMINOPHEN\CODEINE PHOSPHATE
     Dosage: 30 MG / 500 MG (ADVANZ PHARMA) ONE OR TWO TO BE TAKEN FOUR TIMES A DAY WHEN REQUIRED
  3. TAMSULOSIN [Concomitant]
     Active Substance: TAMSULOSIN
  4. DOCUSATE [Concomitant]
     Active Substance: DOCUSATE
     Dosage: 100 MG CAPSULES 1 - 2 TABLETS, ONCE OR TWICE A DAY AS REQUIRED- LOOSE STOOLS
  5. CAPSAICIN [Concomitant]
     Active Substance: CAPSAICIN
     Dosage: APPLY SPARINGLY UP TO 3 OR 4 TIMES DAILY (NOT MORE OFTEN THAN EVERY 4 HOURS)
  6. EDOXABAN [Concomitant]
     Active Substance: EDOXABAN
  7. FINASTERIDE [Concomitant]
     Active Substance: FINASTERIDE
  8. RANOLAZINE [Concomitant]
     Active Substance: RANOLAZINE
     Dosage: 2 SEPARATED DOSES
  9. AMOXICILLIN [Concomitant]
     Active Substance: AMOXICILLIN
     Dosage: 3 SEPARATED DOSES
  10. ATORVASTATIN [Concomitant]
     Active Substance: ATORVASTATIN
  11. LACTULOSE [Concomitant]
     Active Substance: LACTULOSE
     Dosage: 3.1 - 3.7 G / 5 ML 2 SEPARATED DOSES
  12. FUROSEMIDE [Concomitant]
     Active Substance: FUROSEMIDE
     Dosage: IN THE MORNING

REACTIONS (1)
  - Femur fracture [Unknown]
